FAERS Safety Report 4280061-3 (Version None)
Quarter: 2004Q1

REPORT INFORMATION
  Report Type: 
  Country: None (occurrence: None)
  Receive Date: 20040121
  Receipt Date: 20040112
  Transmission Date: 20041129
  Serious: Yes (Death)
  Sender: FDA-Public Use
  Company Number: 04P-083-0246972-00

PATIENT

DRUGS (9)
  1. NORVIR [Suspect]
     Indication: HIV INFECTION
     Dosage: 100 MG, 2 IN 2 D
  2. INDINAVIR [Suspect]
     Indication: HIV INFECTION
     Dosage: 1200 MG, 2 IN 1 D
  3. NELFINAVIR [Suspect]
     Indication: HIV INFECTION
  4. LAMIVUDINE [Concomitant]
  5. ZIDOVUDINE [Concomitant]
  6. DIDANOSINE [Concomitant]
  7. STAVUDINE [Concomitant]
  8. NEVIRAPINE [Concomitant]
  9. EFAVIRENZ [Concomitant]

REACTIONS (1)
  - MYOCARDIAL INFARCTION [None]
